FAERS Safety Report 9989029 (Version 2)
Quarter: 2014Q1

REPORT INFORMATION
  Report Type: Report from Study
  Country: US (occurrence: US)
  Receive Date: 20140310
  Receipt Date: 20140310
  Transmission Date: 20141002
  Serious: No
  Sender: FDA-Public Use
  Company Number: US-ABBVIE-11P-163-0845122-00

PATIENT
  Age: 41 Year
  Sex: Female

DRUGS (5)
  1. HUMIRA 40 MG/0.8 ML PEN [Suspect]
     Indication: PSORIATIC ARTHROPATHY
     Dates: start: 20101103, end: 20120906
  2. VITAMIN C [Concomitant]
     Indication: PRODUCT USED FOR UNKNOWN INDICATION
     Dosage: DAILY
  3. VITAMINS [Concomitant]
     Indication: PRODUCT USED FOR UNKNOWN INDICATION
     Dosage: DAILY
  4. TYLENOL [Concomitant]
     Indication: PAIN
  5. NEXIUM [Concomitant]
     Indication: DYSPEPSIA

REACTIONS (8)
  - Bacterial vaginosis [Unknown]
  - Bacterial vaginosis [Unknown]
  - Bacterial vaginosis [Unknown]
  - Fungal infection [Recovered/Resolved]
  - Neck pain [Unknown]
  - Musculoskeletal pain [Unknown]
  - Arthritis [Unknown]
  - Arthralgia [Unknown]
